FAERS Safety Report 14822487 (Version 1)
Quarter: 2018Q2

REPORT INFORMATION
  Report Type: Spontaneous
  Country: SE (occurrence: SE)
  Receive Date: 20180425
  Receipt Date: 20180425
  Transmission Date: 20180711
  Serious: Yes (Hospitalization)
  Sender: FDA-Public Use
  Company Number: SE-TEVA-2018-SE-885635

PATIENT
  Age: 69 Year
  Sex: Female

DRUGS (3)
  1. ACCOFIL [Suspect]
     Active Substance: FILGRASTIM
     Indication: NEUTROPHIL COUNT
     Dosage: SOLUTION FOR INJECTION OR INFUSION IN PRE-FILLED SYRINGE
     Dates: start: 20171227, end: 20171227
  2. EPIRUBICIN [Suspect]
     Active Substance: EPIRUBICIN
     Indication: BREAST CANCER
     Route: 065
     Dates: start: 20171219
  3. ACCOFIL [Suspect]
     Active Substance: FILGRASTIM
     Dosage: SOLUTION FOR INJECTION OR INFUSION IN PRE-FILLED SYRINGE
     Dates: start: 20171222, end: 20171222

REACTIONS (3)
  - Bone pain [Recovering/Resolving]
  - Back pain [Recovering/Resolving]
  - Febrile neutropenia [Recovered/Resolved]

NARRATIVE: CASE EVENT DATE: 20171227
